FAERS Safety Report 6165908-8 (Version None)
Quarter: 2009Q2

REPORT INFORMATION
  Report Type: 
  Country: None (occurrence: None)
  Receive Date: 20090422
  Receipt Date: 20090408
  Transmission Date: 20091009
  Serious: Yes (Hospitalization)
  Sender: FDA-Public Use
  Company Number: 8037533

PATIENT
  Age: 40 Year
  Sex: Female
  Weight: 81.45 kg

DRUGS (11)
  1. CIMZIA [Suspect]
     Indication: CROHN'S DISEASE
     Dosage: 400 MG SC
     Route: 058
     Dates: start: 20080617
  2. CIMZIA [Suspect]
     Indication: CROHN'S DISEASE
     Dosage: 400 MG /M IM
     Route: 030
  3. TRAZODONE HCL [Concomitant]
  4. ELAVIL [Concomitant]
  5. LYRICA [Concomitant]
  6. TYLENOL /00724201/ [Concomitant]
  7. OXYCODONE HCL [Concomitant]
  8. FLEXERIL [Concomitant]
  9. REGLAN [Concomitant]
  10. NEXIUM [Concomitant]
  11. DEPO PROVERA /00115202/ [Concomitant]

REACTIONS (13)
  - ABDOMINAL PAIN [None]
  - CELLULITIS [None]
  - CHILLS [None]
  - CONDITION AGGRAVATED [None]
  - CROHN'S DISEASE [None]
  - DYSGEUSIA [None]
  - NAUSEA [None]
  - OEDEMA [None]
  - PAIN [None]
  - POSTOPERATIVE WOUND COMPLICATION [None]
  - RECTAL HAEMORRHAGE [None]
  - VAGINAL FISTULA [None]
  - VULVAL ABSCESS [None]
